FAERS Safety Report 12305795 (Version 1)
Quarter: 2016Q2

REPORT INFORMATION
  Report Type: Report from Study
  Country: US (occurrence: US)
  Receive Date: 20160426
  Receipt Date: 20160426
  Transmission Date: 20160815
  Serious: Yes (Other)
  Sender: FDA-Public Use
  Company Number: US-MYLANLABS-2016M1016966

PATIENT

DRUGS (3)
  1. SODIUM CHLORIDE. [Concomitant]
     Active Substance: SODIUM CHLORIDE
     Dosage: 100 ML SALINE
     Route: 043
  2. CIDOFOVIR. [Suspect]
     Active Substance: CIDOFOVIR
     Indication: BK VIRUS INFECTION
     Dosage: 5 MG/KG, IN 100 ML SALINE
     Route: 043
  3. PROBENECID. [Concomitant]
     Active Substance: PROBENECID
     Dosage: 2 G; 3H BEFORE THE BLADDER INSTILLATION
     Route: 048

REACTIONS (5)
  - Respiratory failure [Unknown]
  - Hypomagnesaemia [Unknown]
  - Ileus [Unknown]
  - Nephropathy toxic [Recovered/Resolved]
  - Hyperglycaemia [Unknown]
